FAERS Safety Report 8717011 (Version 3)
Quarter: 2012Q4

REPORT INFORMATION
  Report Type: 
  Country: JP (occurrence: JP)
  Receive Date: 20120810
  Receipt Date: 20121224
  Transmission Date: 20130627
  Serious: Yes (Hospitalization)
  Sender: FDA-Public Use
  Company Number: JP-JNJFOC-20120804021

PATIENT
  Age: 63 Year
  Sex: Male
  Weight: 68 kg

DRUGS (11)
  1. REMICADE [Suspect]
     Indication: RHEUMATOID ARTHRITIS
     Dosage: 0 (initial dose of 3 mg/kg), 2, and 6 weeks and then every 8 weeks
     Route: 042
     Dates: start: 20080408
  2. REMICADE [Suspect]
     Indication: RHEUMATOID ARTHRITIS
     Route: 042
     Dates: start: 20080715
  3. RHEUMATREX [Suspect]
     Indication: RHEUMATOID ARTHRITIS
     Route: 048
     Dates: end: 20080805
  4. MUCOSTA [Concomitant]
     Indication: GASTRITIS
     Route: 048
  5. TAGAMET [Concomitant]
     Indication: GASTRITIS
     Route: 048
  6. FOLIAMIN [Concomitant]
     Indication: PROPHYLAXIS
     Route: 048
  7. VOLTAREN SR [Concomitant]
     Indication: RHEUMATOID ARTHRITIS
     Route: 048
  8. ISCOTIN [Concomitant]
     Indication: PROPHYLAXIS
     Route: 048
  9. SUNRYTHM [Concomitant]
     Indication: ARRHYTHMIA
     Route: 048
  10. TENORMIN [Concomitant]
     Indication: ARRHYTHMIA
     Route: 048
  11. WARFARIN [Concomitant]
     Indication: ARRHYTHMIA
     Route: 048

REACTIONS (1)
  - Pneumocystis jiroveci pneumonia [Recovered/Resolved]
